FAERS Safety Report 5038654-1 (Version None)
Quarter: 2006Q2

REPORT INFORMATION
  Report Type: 
  Country: None (occurrence: None)
  Receive Date: 20060623
  Receipt Date: 20060615
  Transmission Date: 20061013
  Serious: Yes (Hospitalization)
  Sender: FDA-Public Use
  Company Number: 2006045922

PATIENT
  Age: 55 Year
  Sex: Male
  Weight: 43 kg

DRUGS (3)
  1. REVATIO [Suspect]
     Indication: PULMONARY HYPERTENSION
     Dosage: 60 MG, ORAL
     Route: 048
  2. CORTISONE ACETATE [Concomitant]
  3. VIAGRA [Concomitant]

REACTIONS (2)
  - CUTANEOUS VASCULITIS [None]
  - DRUG INTOLERANCE [None]
